FAERS Safety Report 7561845-2 (Version None)
Quarter: 2011Q2

REPORT INFORMATION
  Report Type: 
  Country: None (occurrence: None)
  Receive Date: 20110621
  Receipt Date: 20110617
  Transmission Date: 20111010
  Serious: Yes (Other)
  Sender: FDA-Public Use
  Company Number: FR-PFIZER INC-2011076947

PATIENT
  Age: 48 Year
  Sex: Female

DRUGS (5)
  1. LANSOPRAZOLE [Concomitant]
     Dosage: UNK
  2. LYRICA [Suspect]
     Indication: NEURALGIA
     Dosage: 25 MG, 2X/DAY
     Dates: start: 20100901, end: 20100101
  3. LYRICA [Suspect]
     Dosage: 75 MG, 2X/DAY
     Dates: start: 20100101, end: 20101125
  4. LAMICTAL [Concomitant]
     Indication: EPILEPSY
     Dosage: UNK
  5. TOPIRAMATE [Concomitant]
     Indication: EPILEPSY
     Dosage: UNK

REACTIONS (1)
  - STATUS EPILEPTICUS [None]
